FAERS Safety Report 4518051-5 (Version None)
Quarter: 2004Q4

REPORT INFORMATION
  Report Type: 
  Country: None (occurrence: None)
  Receive Date: 20041203
  Receipt Date: 20041122
  Transmission Date: 20050328
  Serious: Yes (Hospitalization)
  Sender: FDA-Public Use
  Company Number: US-GLAXOSMITHKLINE-A0534875A

PATIENT
  Age: 70 Year
  Sex: Female

DRUGS (11)
  1. ADVAIR DISKUS 100/50 [Suspect]
     Indication: CHRONIC OBSTRUCTIVE AIRWAYS DISEASE
     Dosage: 1PUFF PER DAY
     Route: 055
     Dates: start: 20040101
  2. THEOPHYLLINE [Concomitant]
  3. GUAIFENESIN DM [Concomitant]
  4. ZYRTEC [Concomitant]
  5. BUSPIRONE [Concomitant]
  6. BENZONATATE [Concomitant]
  7. ZOLOFT [Concomitant]
  8. LORAZEPAM [Concomitant]
  9. FUROSEMIDE [Concomitant]
  10. ZESTRIL [Concomitant]
  11. OXYGEN [Concomitant]

REACTIONS (4)
  - ANXIETY [None]
  - DEPRESSION [None]
  - DYSPNOEA EXERTIONAL [None]
  - NASAL CONGESTION [None]
